FAERS Safety Report 5286945-1 (Version None)
Quarter: 2007Q1

REPORT INFORMATION
  Report Type: 
  Country: None (occurrence: None)
  Receive Date: 20070329
  Receipt Date: 20070315
  Transmission Date: 20070707
  Serious: Yes (Other)
  Sender: FDA-Public Use
  Company Number: 2007RR-06417

PATIENT
  Age: 68 Year
  Sex: Female

DRUGS (7)
  1. CIPROFLOXACIN [Suspect]
     Indication: URINARY TRACT INFECTION
     Dosage: 500 MG, BID, ORAL
     Route: 048
  2. AMOXYL/CLAVULANIC ACID [Concomitant]
  3. HEPARIN [Concomitant]
  4. SOLU-MEDROL [Concomitant]
  5. CLARITHROMYCIN [Concomitant]
  6. CEFEPIME [Concomitant]
  7. PREDNISONE TAB [Concomitant]

REACTIONS (2)
  - ALVEOLITIS ALLERGIC [None]
  - IDIOPATHIC PULMONARY FIBROSIS [None]
